FAERS Safety Report 4482342-7 (Version None)
Quarter: 2004Q4

REPORT INFORMATION
  Report Type: 
  Country: None (occurrence: None)
  Receive Date: 20041022
  Receipt Date: 20041015
  Transmission Date: 20050328
  Serious: Yes (Other)
  Sender: FDA-Public Use
  Company Number: US-ROCHE-383679

PATIENT
  Age: 50 Year
  Sex: Male
  Weight: 65.8 kg

DRUGS (4)
  1. FUZEON [Suspect]
     Indication: HIV INFECTION
     Route: 058
     Dates: start: 20031227
  2. VIREAD [Concomitant]
     Indication: HIV INFECTION
     Route: 048
  3. MARINOL [Concomitant]
     Indication: APPETITE DISORDER
     Route: 048
  4. UNKNOWN DRUG [Concomitant]
     Indication: HIV INFECTION
     Route: 048

REACTIONS (3)
  - PHOTOPSIA [None]
  - RETINAL HAEMORRHAGE [None]
  - VITREOUS FLOATERS [None]
